FAERS Safety Report 7565563-6 (Version None)
Quarter: 2011Q2

REPORT INFORMATION
  Report Type: 
  Country: None (occurrence: None)
  Receive Date: 20110615
  Receipt Date: 20110601
  Transmission Date: 20111010
  Serious: Yes (Life-Threatening, Hospitalization)
  Sender: FDA-Public Use
  Company Number: FR-005507

PATIENT
  Sex: Male

DRUGS (11)
  1. ALLOPURINOL [Concomitant]
  2. PERINDOPRIL ERBUMINE [Concomitant]
  3. PRAZOSIN HCL [Concomitant]
  4. MINIRIN/DDAVP (MINIRIN) 100 UG (NOT SPECIFIED) [Suspect]
     Indication: DIABETES INSIPIDUS
     Dosage: 300 UG, ORAL
     Route: 048
     Dates: start: 19950101
  5. FENOFIBRATE [Concomitant]
  6. JANUVIA [Concomitant]
  7. ASPIRIN [Concomitant]
  8. BISOPROLOL FUMARATE [Concomitant]
  9. ACTOS [Concomitant]
  10. DIAMICRON [Concomitant]
  11. KAYEXALATE [Concomitant]

REACTIONS (1)
  - BLADDER TRANSITIONAL CELL CARCINOMA [None]
